FAERS Safety Report 5193004-5 (Version None)
Quarter: 2006Q4

REPORT INFORMATION
  Report Type: 
  Country: None (occurrence: None)
  Receive Date: 20061228
  Receipt Date: 20060214
  Transmission Date: 20070319
  Serious: No
  Sender: FDA-Public Use
  Company Number: US-GLAXOSMITHKLINE-A0593654A

PATIENT
  Age: 77 Year
  Sex: Male

DRUGS (6)
  1. AVODART [Suspect]
     Indication: PROSTATISM
     Dosage: .5MG PER DAY
     Route: 048
     Dates: start: 20040501, end: 20050601
  2. ACTOS [Concomitant]
  3. GLYNASE [Concomitant]
  4. ASPIRIN [Concomitant]
  5. ACCUPRIL [Concomitant]
  6. COREG [Concomitant]

REACTIONS (1)
  - BREAST TENDERNESS [None]
